FAERS Safety Report 5198907-3 (Version None)
Quarter: 2006Q4

REPORT INFORMATION
  Report Type: 
  Country: None (occurrence: None)
  Receive Date: 20060925
  Receipt Date: 20060321
  Transmission Date: 20070319
  Serious: Yes (Hospitalization)
  Sender: FDA-Public Use
  Company Number: 2006US000561

PATIENT
  Age: 15 Year
  Sex: Male

DRUGS (1)
  1. AMBISOME [Suspect]
     Indication: FUNGAL INFECTION
     Dosage: 350 MG, UID/QD, IV NOS
     Route: 042
     Dates: start: 20060320

REACTIONS (2)
  - DYSPNOEA [None]
  - SWELLING FACE [None]
